FAERS Safety Report 22958590 (Version 3)
Quarter: 2023Q4

REPORT INFORMATION
  Report Type: Spontaneous
  Country: CH (occurrence: CH)
  Receive Date: 20230919
  Receipt Date: 20231011
  Transmission Date: 20240110
  Serious: Yes (Other)
  Sender: FDA-Public Use
  Company Number: CH-ELI_LILLY_AND_COMPANY-CH202309008877

PATIENT
  Age: 66 Year
  Sex: Male

DRUGS (1)
  1. TALTZ [Suspect]
     Active Substance: IXEKIZUMAB
     Indication: Psoriasis
     Dosage: UNK UNK, UNKNOWN
     Route: 065
     Dates: start: 2021

REACTIONS (5)
  - Subarachnoid haemorrhage [Unknown]
  - Epilepsy [Unknown]
  - Epilepsy [Unknown]
  - Fall [Unknown]
  - Impaired healing [Unknown]

NARRATIVE: CASE EVENT DATE: 20230501
